FAERS Safety Report 7506807-6 (Version None)
Quarter: 2011Q2

REPORT INFORMATION
  Report Type: 
  Country: None (occurrence: None)
  Receive Date: 20110526
  Receipt Date: 20110518
  Transmission Date: 20111010
  Serious: Yes (Other)
  Sender: FDA-Public Use
  Company Number: A0921302A

PATIENT
  Age: 68 Year
  Sex: Female

DRUGS (4)
  1. ANTI-CHOLESTEROL MEDICATION [Concomitant]
  2. BLOOD PRESSURE MEDICATION [Concomitant]
  3. VENTOLIN [Concomitant]
  4. ADVAIR DISKUS 100/50 [Suspect]
     Indication: ASTHMA
     Dosage: 1PUFF TWICE PER DAY
     Route: 055
     Dates: start: 20050101

REACTIONS (4)
  - INHALATION THERAPY [None]
  - PRODUCT QUALITY ISSUE [None]
  - ASTHMA [None]
  - DRUG ADMINISTRATION ERROR [None]
